FAERS Safety Report 5140107-7 (Version None)
Quarter: 2006Q4

REPORT INFORMATION
  Report Type: 
  Country: None (occurrence: None)
  Receive Date: 20061025
  Receipt Date: 20061020
  Transmission Date: 20070319
  Serious: Yes (Hospitalization)
  Sender: FDA-Public Use
  Company Number: RB-4197-2006

PATIENT
  Age: 58 Year
  Sex: Male
  Weight: 108.8633 kg

DRUGS (2)
  1. SUBOXONE [Suspect]
     Indication: DRUG DEPENDENCE
     Dosage: 8MG BID SUBLINGUAL
     Route: 060
     Dates: start: 20060904, end: 20060915
  2. METFORMIN [Concomitant]

REACTIONS (2)
  - PANCREATITIS [None]
  - TREATMENT NONCOMPLIANCE [None]
